FAERS Safety Report 20491029 (Version 1)
Quarter: 2022Q1

REPORT INFORMATION
  Report Type: Spontaneous
  Country: US (occurrence: None)
  Receive Date: 20220218
  Receipt Date: 20220218
  Transmission Date: 20220423
  Serious: Yes (Death)
  Sender: FDA-Public Use
  Company Number: None

PATIENT
  Sex: Male

DRUGS (17)
  1. ESBRIET [Suspect]
     Active Substance: PIRFENIDONE
     Indication: Idiopathic pulmonary fibrosis
     Route: 048
     Dates: start: 20191002
  2. ALBUTEROL [Concomitant]
     Active Substance: ALBUTEROL
  3. ASPIRIN [Concomitant]
     Active Substance: ASPIRIN
  4. ATORVASTATIN [Concomitant]
  5. CHLORHEXIDIN SOL GLUCONAT [Concomitant]
  6. DILTIAZEM CAP [Concomitant]
  7. MECLIZINE TAB [Concomitant]
  8. METRONIDAZOL TAB [Concomitant]
  9. MUCINEX TAB [Concomitant]
  10. OMEPRAZOLE TAB [Concomitant]
  11. PREDNISONE [Concomitant]
     Active Substance: PREDNISONE
  12. VITAMIN B100 [Concomitant]
  13. OMEPRAZOLE TAB [Concomitant]
  14. PREDNISONE [Concomitant]
     Active Substance: PREDNISONE
  15. VITAMIN B100 COMPLEX [Concomitant]
  16. VITAMIN C TAB [Concomitant]
  17. VITAMIN D3 CAP [Concomitant]

REACTIONS (1)
  - Death [None]
